FAERS Safety Report 6056625-3 (Version None)
Quarter: 2009Q1

REPORT INFORMATION
  Report Type: 
  Country: None (occurrence: None)
  Receive Date: 20090129
  Receipt Date: 20090122
  Transmission Date: 20090719
  Serious: Yes (Other)
  Sender: FDA-Public Use
  Company Number: US-PURDUE-USA_2008_0036346

PATIENT
  Age: 45 Year
  Sex: Male
  Weight: 137 kg

DRUGS (1)
  1. OXYCONTIN [Suspect]
     Indication: NEURALGIA
     Dosage: 240 MG, QID
     Route: 048
     Dates: start: 20000101

REACTIONS (3)
  - DIABETIC COMA [None]
  - DRUG WITHDRAWAL SYNDROME [None]
  - HALLUCINATION [None]
